FAERS Safety Report 18968267 (Version 2)
Quarter: 2021Q2

REPORT INFORMATION
  Report Type: Spontaneous
  Country: US (occurrence: US)
  Receive Date: 20210304
  Receipt Date: 20210405
  Transmission Date: 20210717
  Serious: No
  Sender: FDA-Public Use
  Company Number: US-SA-2021SA072601

PATIENT
  Sex: Female

DRUGS (16)
  1. IMODIUM [Concomitant]
     Active Substance: LOPERAMIDE HYDROCHLORIDE
  2. AMITRIPTYLINE HCL [Concomitant]
     Active Substance: AMITRIPTYLINE
  3. LECITHIN [Concomitant]
     Active Substance: LECITHIN
  4. KETOPROFEN. [Concomitant]
     Active Substance: KETOPROFEN
  5. GRALISE [Concomitant]
     Active Substance: GABAPENTIN
     Dosage: UNK UNK, QD
  6. ELIQUIS [Concomitant]
     Active Substance: APIXABAN
  7. AMBRISENTAN [Concomitant]
     Active Substance: AMBRISENTAN
  8. CELEXA [Concomitant]
     Active Substance: CITALOPRAM HYDROBROMIDE
  9. CLONIDINE. [Concomitant]
     Active Substance: CLONIDINE
  10. TADALAFIL. [Concomitant]
     Active Substance: TADALAFIL
  11. ZYRTEC [Concomitant]
     Active Substance: CETIRIZINE HYDROCHLORIDE
  12. DUPIXENT [Suspect]
     Active Substance: DUPILUMAB
     Indication: ILLNESS
     Dosage: 300 MG, QOW
     Route: 058
     Dates: start: 20200913, end: 202009
  13. DUPIXENT [Suspect]
     Active Substance: DUPILUMAB
     Indication: DERMATITIS ATOPIC
  14. KETAMINE HCL [Concomitant]
     Active Substance: KETAMINE HYDROCHLORIDE
  15. LASIX [Concomitant]
     Active Substance: FUROSEMIDE
  16. REMODULIN [Concomitant]
     Active Substance: TREPROSTINIL

REACTIONS (12)
  - Depression [Not Recovered/Not Resolved]
  - Skin disorder [Unknown]
  - Anxiety [Not Recovered/Not Resolved]
  - Insomnia [Not Recovered/Not Resolved]
  - Limb discomfort [Not Recovered/Not Resolved]
  - Catheter site pruritus [Unknown]
  - Visual impairment [Not Recovered/Not Resolved]
  - Amnesia [Not Recovered/Not Resolved]
  - Catheter site erythema [Unknown]
  - Catheter site swelling [Unknown]
  - Catheter site pain [Unknown]
  - Weight decreased [Not Recovered/Not Resolved]
